FAERS Safety Report 7753051-3 (Version None)
Quarter: 2011Q3

REPORT INFORMATION
  Report Type: 
  Country: None (occurrence: None)
  Receive Date: 20110915
  Receipt Date: 20110907
  Transmission Date: 20111222
  Serious: Yes (Hospitalization, Other)
  Sender: FDA-Public Use
  Company Number: US-AMGEN-USASP2011039567

PATIENT
  Age: 16 Year
  Sex: Male

DRUGS (18)
  1. NPLATE [Suspect]
  2. NPLATE [Suspect]
  3. IVIGLOB-EX [Concomitant]
  4. TACROLIMUS [Concomitant]
     Dosage: UNK
     Dates: end: 20110725
  5. PREDNISONE [Concomitant]
  6. ACYCLOVIR [Concomitant]
     Dosage: 800 MG, Q12H
  7. NPLATE [Suspect]
  8. POTASSIUM CHLORIDE [Concomitant]
     Dosage: 10 MEQ, UNK
  9. BICITRA                            /00586801/ [Concomitant]
     Dosage: 10 ML, Q12H
  10. MORPHINE [Concomitant]
     Dosage: 15 MG, Q12H
  11. MIRTAZAPINE [Concomitant]
     Dosage: 300 MG, UNK
  12. NPLATE [Suspect]
     Indication: MYELODYSPLASTIC SYNDROME
     Dosage: 5 MUG/KG, UNK
     Dates: start: 20110105
  13. CORTICOSTEROIDS [Concomitant]
  14. DRONABINOL [Concomitant]
     Dosage: UNK
  15. RITUXIMAB [Concomitant]
  16. ETHAMBUTOL HYDROCHLORIDE [Concomitant]
     Dosage: 400 MG, UNK
  17. AZITHROMYCIN [Concomitant]
     Dosage: 250 MG, UNK
  18. LISINOPRIL [Concomitant]
     Dosage: 5 MG, QD

REACTIONS (7)
  - HOSPITALISATION [None]
  - PLASMACYTOMA [None]
  - NEPHRITIS [None]
  - RENAL FAILURE [None]
  - CHRONIC GRAFT VERSUS HOST DISEASE [None]
  - PROTEINURIA [None]
  - EPSTEIN-BARR VIRUS ASSOCIATED LYMPHOPROLIFERATIVE DISORDER [None]
